FAERS Safety Report 6632050-9 (Version None)
Quarter: 2010Q1

REPORT INFORMATION
  Report Type: 
  Country: None (occurrence: None)
  Receive Date: 20100312
  Receipt Date: 20090610
  Transmission Date: 20100710
  Serious: No
  Sender: FDA-Public Use
  Company Number: US-BIOGENIDEC-2009BI017945

PATIENT
  Age: 67 Year
  Sex: Male

DRUGS (1)
  1. AVONEX [Suspect]
     Indication: MULTIPLE SCLEROSIS
     Route: 030
     Dates: start: 20090519

REACTIONS (4)
  - ASTHENIA [None]
  - LISTLESS [None]
  - MENTAL IMPAIRMENT [None]
  - VOMITING [None]
